FAERS Safety Report 8263324-6 (Version None)
Quarter: 2012Q1

REPORT INFORMATION
  Report Type: 
  Country: None (occurrence: None)
  Receive Date: 20120327
  Receipt Date: 20110425
  Transmission Date: 20120608
  Serious: Yes (Other)
  Sender: FDA-Public Use
  Company Number: PHHY2011US34842

PATIENT
  Age: 84 Year
  Sex: Male

DRUGS (1)
  1. GLEEVEC [Suspect]
     Indication: CHRONIC MYELOID LEUKAEMIA
     Dosage: 400MG, DAILY, ORAL
     Route: 048
     Dates: start: 20110114

REACTIONS (4)
  - FLUID RETENTION [None]
  - SWELLING [None]
  - VERTIGO [None]
  - WEIGHT INCREASED [None]
